FAERS Safety Report 18468734 (Version 2)
Quarter: 2021Q2

REPORT INFORMATION
  Report Type: Spontaneous
  Country: CA (occurrence: CA)
  Receive Date: 20201105
  Receipt Date: 20210623
  Transmission Date: 20210717
  Serious: Yes (Other)
  Sender: FDA-Public Use
  Company Number: CA-JNJFOC-20201051167

PATIENT
  Age: 34 Year
  Sex: Female
  Weight: 51 kg

DRUGS (2)
  1. REMICADE [Suspect]
     Active Substance: INFLIXIMAB
     Route: 042
  2. REMICADE [Suspect]
     Active Substance: INFLIXIMAB
     Indication: COLITIS ULCERATIVE
     Route: 042

REACTIONS (16)
  - Condition aggravated [Recovered/Resolved]
  - Maternal exposure during pregnancy [Recovered/Resolved]
  - Inappropriate schedule of product administration [Recovered/Resolved]
  - Heart rate irregular [Recovered/Resolved]
  - Intentional product use issue [Recovered/Resolved]
  - Gestational diabetes [Unknown]
  - Fear of injection [Unknown]
  - Product use issue [Recovered/Resolved]
  - Incorrect dose administered [Unknown]
  - Off label use [Recovered/Resolved]
  - Syncope [Recovered/Resolved]
  - Emotional disorder [Unknown]
  - Stress [Unknown]
  - Crying [Unknown]
  - Drug ineffective [Unknown]
  - Diarrhoea [Recovered/Resolved]
